FAERS Safety Report 17293429 (Version 1)
Quarter: 2020Q1

REPORT INFORMATION
  Report Type: Spontaneous
  Country: SE (occurrence: SE)
  Receive Date: 20200121
  Receipt Date: 20200121
  Transmission Date: 20200409
  Serious: Yes (Hospitalization)
  Sender: FDA-Public Use
  Company Number: SE-TEVA-2020-SE-1170228

PATIENT
  Age: 86 Year
  Sex: Female

DRUGS (13)
  1. MIRTAZAPIN ACTAVIS [Suspect]
     Active Substance: MIRTAZAPINE
     Dates: start: 20181023
  2. IMDUR 60 MG DEPOTTABLETT [Concomitant]
     Dates: start: 20180406
  3. OXYNORM [Suspect]
     Active Substance: OXYCODONE HYDROCHLORIDE
     Dosage: 5 MILLIGRAM
     Dates: start: 2019
  4. TROMBYL 75 MG TABLETT [Concomitant]
     Active Substance: ASPIRIN
     Dates: start: 20170823
  5. FURIX 40 MG TABLETT [Concomitant]
     Dates: start: 20180809
  6. METOPROLOL ORION 50 MG DEPOTTABLETT [Concomitant]
     Dates: start: 20170823
  7. IMOVANE [Concomitant]
     Active Substance: ZOPICLONE
     Dates: start: 20170823
  8. ALVEDON [Concomitant]
     Active Substance: ACETAMINOPHEN
     Dates: start: 20180406
  9. ATORVASTATIN [Concomitant]
     Active Substance: ATORVASTATIN
     Dosage: 40 MILLIGRAM
     Dates: start: 20170823
  10. GANFORT 0,3 MG/ML + 5 MG/ML  OGONDROPPAR, LOSNING [Concomitant]
     Dates: start: 20170526
  11. MIRTAZAPIN ACTAVIS [Concomitant]
     Active Substance: MIRTAZAPINE
     Dates: start: 20181023
  12. HYDROCHLOROTHIAZIDE ORION 12,5 MG TABLETT [Concomitant]
     Dates: start: 20190208
  13. PEVISONE 1 MG/G + 10 MG/G KRAM [Concomitant]
     Dates: start: 20180216

REACTIONS (3)
  - Personality change [Recovering/Resolving]
  - Hallucination [Recovering/Resolving]
  - Fatigue [Recovering/Resolving]

NARRATIVE: CASE EVENT DATE: 201910
